FAERS Safety Report 7737581-6 (Version None)
Quarter: 2011Q3

REPORT INFORMATION
  Report Type: 
  Country: None (occurrence: None)
  Receive Date: 20110908
  Receipt Date: 20110901
  Transmission Date: 20111222
  Serious: Yes (Hospitalization, Disabling, Other)
  Sender: FDA-Public Use
  Company Number: US-MERCK-1103USA03207

PATIENT
  Age: 59 Year
  Sex: Female
  Weight: 59 kg

DRUGS (10)
  1. TIMOPTIC [Concomitant]
     Route: 047
  2. MIACALCIN [Concomitant]
     Route: 065
  3. FOSAMAX [Suspect]
     Route: 065
     Dates: start: 20080305, end: 20080818
  4. BEXTRA [Concomitant]
     Route: 065
     Dates: start: 20030601
  5. FOSAMAX [Suspect]
     Indication: OSTEOPOROSIS
     Route: 048
     Dates: start: 20000101, end: 20100101
  6. VITAMINS (UNSPECIFIED) [Concomitant]
     Route: 065
  7. NORVASC [Concomitant]
     Route: 048
     Dates: start: 20051001
  8. ALENDRONATE SODIUM [Suspect]
     Route: 065
     Dates: start: 20090107, end: 20100303
  9. FOSAMAX [Suspect]
     Route: 048
     Dates: start: 20000407, end: 20010405
  10. ASPIRIN [Concomitant]
     Route: 065

REACTIONS (34)
  - BURSITIS [None]
  - HYPERCHOLESTEROLAEMIA [None]
  - BASAL CELL CARCINOMA [None]
  - BREAST CALCIFICATIONS [None]
  - TYPE V HYPERLIPIDAEMIA [None]
  - HYPERTENSION [None]
  - CATARACT [None]
  - CONJUNCTIVAL HYPERAEMIA [None]
  - ANAEMIA POSTOPERATIVE [None]
  - URINARY TRACT INFECTION [None]
  - DERMAL CYST [None]
  - SYNOVIAL CYST [None]
  - PATELLOFEMORAL PAIN SYNDROME [None]
  - MUSCLE SPASMS [None]
  - HORMONE LEVEL ABNORMAL [None]
  - ARTHRITIS [None]
  - SOFT TISSUE DISORDER [None]
  - MELANOCYTIC NAEVUS [None]
  - BLOOD GLUCOSE INCREASED [None]
  - MUSCULOSKELETAL CHEST PAIN [None]
  - DEVICE DISLOCATION [None]
  - MENISCUS LESION [None]
  - WOUND SECRETION [None]
  - SCIATICA [None]
  - HYPERPLASIA [None]
  - VISUAL FIELD DEFECT [None]
  - OSTEOARTHRITIS [None]
  - CYST [None]
  - FEMUR FRACTURE [None]
  - PHARYNGITIS [None]
  - GLAUCOMA [None]
  - TRIGGER FINGER [None]
  - OSTEOPENIA [None]
  - ELECTROCARDIOGRAM ABNORMAL [None]
